FAERS Safety Report 9790532 (Version 2)
Quarter: 2014Q1

REPORT INFORMATION
  Report Type: Report from Study
  Country: FR (occurrence: FR)
  Receive Date: 20131231
  Receipt Date: 20140221
  Transmission Date: 20141002
  Serious: Yes (Death)
  Sender: FDA-Public Use
  Company Number: FR-PFIZER INC-2013369848

PATIENT
  Age: 59 Year
  Sex: Female

DRUGS (5)
  1. MYLOTARG [Suspect]
     Indication: ACUTE MYELOID LEUKAEMIA
     Dosage: 4.55 MG, UNK
     Route: 042
     Dates: start: 20131113, end: 20131113
  2. MYLOTARG [Suspect]
     Dosage: 4.55 MG, UNK
     Route: 042
     Dates: start: 20131116, end: 20131116
  3. MYLOTARG [Suspect]
     Dosage: 4.55 MG, UNK
     Route: 042
     Dates: start: 20131119, end: 20131119
  4. ARACYTINE [Suspect]
     Indication: ACUTE MYELOID LEUKAEMIA
     Dosage: 1520 MG, 2X/DAY
     Route: 042
     Dates: start: 20131113, end: 20131117
  5. NOVANTRONE [Suspect]
     Indication: ACUTE MYELOID LEUKAEMIA
     Dosage: 18.2 MG, 1X/DAY
     Route: 042
     Dates: start: 20131113, end: 20131115

REACTIONS (2)
  - Bone marrow failure [Fatal]
  - Cardiac failure [Fatal]
